FAERS Safety Report 8437838-X (Version None)
Quarter: 2012Q2

REPORT INFORMATION
  Report Type: 
  Country: None (occurrence: None)
  Receive Date: 20120614
  Receipt Date: 20120518
  Transmission Date: 20120825
  Serious: Yes (Other)
  Sender: FDA-Public Use
  Company Number: US-AMGEN-USASP2012030801

PATIENT
  Age: 57 Year
  Sex: Male

DRUGS (15)
  1. AMLODIPINE [Concomitant]
     Dosage: 5 MG, QD
  2. ASPIRIN [Concomitant]
     Dosage: 81 MG, QD
  3. REGULAR INSULIN [Concomitant]
     Dosage: 40 UNIT, QID
     Route: 058
  4. FUROSEMIDE [Concomitant]
     Dosage: 80 MG, Q12H
  5. ACETAMINOPHEN [Concomitant]
     Dosage: 650 MG, PRN
  6. FISH OIL [Concomitant]
     Dosage: 1200 MG, QD
  7. SERTRALINE HYDROCHLORIDE [Concomitant]
     Dosage: 100 MG, QHS
  8. NPH INSULIN [Concomitant]
     Dosage: 56 UNIT, BID
     Route: 058
  9. XGEVA [Suspect]
     Indication: PROPHYLAXIS
     Dosage: 120 MG, Q4WK
     Dates: end: 20111205
  10. ALLOPURINOL [Concomitant]
     Dosage: 100 MG, UNK
  11. AFINITOR [Concomitant]
     Dosage: 1 DF, QD
  12. METOPROLOLTARTRAT HEXAL [Concomitant]
     Dosage: 200 MG, QD
  13. PREDNISONE TAB [Concomitant]
     Dosage: 20 MG, BID
  14. OMEPRAZOLE [Concomitant]
     Dosage: 20 MG, QD
  15. PRAVASTATIN [Concomitant]
     Dosage: 10 MG, QHS

REACTIONS (1)
  - HYPOCALCAEMIA [None]
